FAERS Safety Report 26042155 (Version 1)
Quarter: 2025Q4

REPORT INFORMATION
  Report Type: Spontaneous
  Country: US (occurrence: None)
  Receive Date: 20251113
  Receipt Date: 20251113
  Transmission Date: 20260117
  Serious: Yes (Other)
  Sender: FDA-CTU
  Company Number: None

PATIENT
  Age: 37 Year
  Sex: Male
  Weight: 102.6 kg

DRUGS (3)
  1. ARIPIPRAZOLE [Suspect]
     Active Substance: ARIPIPRAZOLE
     Indication: Psychotic disorder
     Dosage: FREQUENCY : DAILY;?
     Route: 048
     Dates: start: 20250908, end: 20250908
  2. Abilify 10 mg daily [Concomitant]
     Dates: start: 20250908, end: 20250908
  3. Latuda 40mg daily [Concomitant]

REACTIONS (7)
  - Blood pressure decreased [None]
  - Haemoglobin decreased [None]
  - Haematocrit decreased [None]
  - Dizziness [None]
  - Pallor [None]
  - Nausea [None]
  - Therapy cessation [None]

NARRATIVE: CASE EVENT DATE: 20250908
